FAERS Safety Report 18398243 (Version 1)
Quarter: 2020Q4

REPORT INFORMATION
  Report Type: Report from Study
  Country: US (occurrence: US)
  Receive Date: 20201019
  Receipt Date: 20201019
  Transmission Date: 20210114
  Serious: Yes (Other)
  Sender: FDA-Public Use
  Company Number: US-TAKEDA-2017TUS009704

PATIENT
  Age: 53 Year
  Sex: Male
  Weight: 86.17 kg

DRUGS (1)
  1. VEDOLIZUMAB [Suspect]
     Active Substance: VEDOLIZUMAB
     Indication: COLITIS ULCERATIVE
     Dosage: 300 MILLIGRAM
     Route: 042
     Dates: start: 201507

REACTIONS (2)
  - Nephrolithiasis [Not Recovered/Not Resolved]
  - Ear neoplasm [Unknown]

NARRATIVE: CASE EVENT DATE: 20170417
